FAERS Safety Report 6326388-2 (Version None)
Quarter: 2009Q3

REPORT INFORMATION
  Report Type: 
  Country: None (occurrence: None)
  Receive Date: 20090821
  Receipt Date: 20090811
  Transmission Date: 20100115
  Serious: Yes (Death)
  Sender: FDA-Public Use
  Company Number: GXKR2008FR04123

PATIENT
  Age: 49 Year
  Sex: Male
  Weight: 98 kg

DRUGS (5)
  1. SUCCINYLCHOLINE CHLORIDE [Suspect]
     Indication: ANAESTHESIA
     Dosage: 1MG/KG
  2. PROPOFOL [Concomitant]
  3. SPIRONOLACTONE [Concomitant]
  4. RILMENIDINE (RILMENIDINE) [Concomitant]
  5. ALTIZIDE (ALTIZIDE) [Concomitant]

REACTIONS (17)
  - ACIDOSIS [None]
  - ANAPHYLACTIC SHOCK [None]
  - BLOOD PRESSURE SYSTOLIC DECREASED [None]
  - CARDIAC ARREST [None]
  - COAGULOPATHY [None]
  - ELECTROMECHANICAL DISSOCIATION [None]
  - ERYTHEMA [None]
  - HYPOTENSION [None]
  - MULTI-ORGAN FAILURE [None]
  - OXYGEN SATURATION IMMEASURABLE [None]
  - PILOERECTION [None]
  - PULMONARY OEDEMA [None]
  - PULSE ABSENT [None]
  - RENAL FAILURE [None]
  - RHABDOMYOLYSIS [None]
  - SHOCK [None]
  - VENTRICULAR FIBRILLATION [None]
